FAERS Safety Report 4592119-X (Version None)
Quarter: 2005Q1

REPORT INFORMATION
  Report Type: 
  Country: None (occurrence: None)
  Receive Date: 20050125
  Receipt Date: 20040816
  Transmission Date: 20050727
  Serious: No
  Sender: FDA-Public Use
  Company Number: USA040875602

PATIENT
  Age: 72 Year
  Sex: Female
  Weight: 54 kg

DRUGS (10)
  1. FORTEO [Suspect]
     Indication: OSTEOPOROSIS
     Dosage: 20 UG/1 DAY
     Dates: start: 20040807
  2. PREDNISONE [Concomitant]
  3. CALCIUM GLUCONATE [Concomitant]
  4. PROVERA [Concomitant]
  5. PREMARIN [Concomitant]
  6. VITAMIN C [Concomitant]
  7. VITAMIN A [Concomitant]
  8. VITAMIN B NOS [Concomitant]
  9. VITAMIN E [Concomitant]
  10. CHROMIUM [Concomitant]

REACTIONS (4)
  - ABDOMINAL PAIN UPPER [None]
  - DEPRESSION [None]
  - DIARRHOEA [None]
  - PAIN [None]
